FAERS Safety Report 18547568 (Version 1)
Quarter: 2020Q4

REPORT INFORMATION
  Report Type: Report from Study
  Country: FR (occurrence: FR)
  Receive Date: 20201125
  Receipt Date: 20201125
  Transmission Date: 20210114
  Serious: Yes (Hospitalization)
  Sender: FDA-Public Use
  Company Number: FR-TAKEDA-2020TUS044451

PATIENT
  Age: 10 Year
  Sex: Male

DRUGS (8)
  1. TEDUGLUTIDE [Suspect]
     Active Substance: TEDUGLUTIDE
     Indication: SHORT-BOWEL SYNDROME
     Dosage: 1.4 MILLIGRAM (DAILY DOSE 0.05 MG/KG), TED DOSES PER WEEK 7
     Route: 065
     Dates: start: 20181214
  2. TEDUGLUTIDE [Suspect]
     Active Substance: TEDUGLUTIDE
     Indication: SHORT-BOWEL SYNDROME
     Dosage: 1.4 MILLIGRAM (DAILY DOSE 0.05 MG/KG), TED DOSES PER WEEK 7
     Route: 065
     Dates: start: 20181214
  3. TAUROLOCK [Concomitant]
     Active Substance: TAUROLIDINE
     Indication: INFECTION PROPHYLAXIS
     Dosage: 0.3 MILLILITER, QD
     Route: 042
     Dates: start: 201812
  4. URSOLVAN [Concomitant]
     Active Substance: URSODIOL
     Indication: CHOLELITHIASIS
     Dosage: 200.0 MILLIGRAM, BID
     Route: 048
     Dates: start: 20180306
  5. TEDUGLUTIDE [Suspect]
     Active Substance: TEDUGLUTIDE
     Indication: SHORT-BOWEL SYNDROME
     Dosage: 1.4 MILLIGRAM (DAILY DOSE 0.05 MG/KG), TED DOSES PER WEEK 7
     Route: 065
     Dates: start: 20181214
  6. TEDUGLUTIDE [Suspect]
     Active Substance: TEDUGLUTIDE
     Indication: SHORT-BOWEL SYNDROME
     Dosage: 1.4 MILLIGRAM (DAILY DOSE 0.05 MG/KG), TED DOSES PER WEEK 7
     Route: 065
     Dates: start: 20181214
  7. BICARBONATE DE SODIUM AGUETTANT [Concomitant]
     Active Substance: SODIUM BICARBONATE
     Indication: BLOOD BICARBONATE
     Dosage: 2 DOSAGE FORM, QD
     Route: 048
     Dates: start: 20181214
  8. ZITROMAX [Concomitant]
     Active Substance: AZITHROMYCIN
     Indication: PRODUCT USED FOR UNKNOWN INDICATION
     Dosage: 250 MILLIGRAM, BID
     Route: 048
     Dates: start: 20200609, end: 20200613

REACTIONS (1)
  - Pyrexia [Recovered/Resolved]

NARRATIVE: CASE EVENT DATE: 20200530
